FAERS Safety Report 8764257 (Version 2)
Quarter: 2012Q4

REPORT INFORMATION
  Report Type: 
  Country: FR (occurrence: FR)
  Receive Date: 20120831
  Receipt Date: 20121003
  Transmission Date: 20130627
  Serious: Yes (Hospitalization)
  Sender: FDA-Public Use
  Company Number: FR-PFIZER INC-2012208098

PATIENT
  Age: 45 Year
  Sex: Male
  Weight: 59 kg

DRUGS (16)
  1. ZYVOXID [Suspect]
     Indication: MICROCOCCUS INFECTION
     Dosage: 600 mg, 2x/day (in the morning and in the evening)
     Route: 042
     Dates: start: 20120725, end: 20120802
  2. INEXIUM [Concomitant]
     Dosage: 40 mg, 2x/day
  3. CALCIDOSE VITAMINE D3 [Concomitant]
  4. RUBOZINC [Concomitant]
     Dosage: 2 DF, 1x/day in the morning
  5. TOCO [Concomitant]
     Dosage: 2 DF, 1x/day
  6. URSOLVAN [Concomitant]
     Dosage: one in the morning and one in the evening
  7. COUMADINE [Concomitant]
     Dosage: 4 mg every other day, alternating with 5 mg every other day
  8. UN ALPHA [Concomitant]
     Dosage: 2 ug, 1x/day in the morning
  9. MAGNE-B6 [Concomitant]
     Dosage: one in the morning, one at noon and one in the evening
  10. SODIUM BICARBONATE [Concomitant]
     Dosage: one in the morning, one at noon and one in the evening
  11. SPASFON [Concomitant]
  12. DEBRIDAT [Concomitant]
  13. COPPER [Concomitant]
     Dosage: 1 DF, 1x/day
  14. TOTAL PARENTERAL NUTRITION [Concomitant]
     Route: 051
  15. VANCOMYCIN [Concomitant]
  16. AMOXICILLIN [Concomitant]
     Dosage: UNK
     Dates: start: 20120723, end: 20120724

REACTIONS (4)
  - Nystagmus [Recovered/Resolved]
  - Dizziness [Recovered/Resolved]
  - Vomiting [Recovered/Resolved]
  - Headache [Recovered/Resolved]
